FAERS Safety Report 9678842 (Version 1)
Quarter: 2013Q4

REPORT INFORMATION
  Report Type: Spontaneous
  Country: IT (occurrence: IT)
  Receive Date: 20131108
  Receipt Date: 20131108
  Transmission Date: 20140711
  Serious: Yes (Hospitalization)
  Sender: FDA-Public Use
  Company Number: IT-GLAXOSMITHKLINE-B0941146A

PATIENT
  Age: 62 Year
  Sex: Female

DRUGS (3)
  1. REVOLADE [Suspect]
     Indication: IMMUNE THROMBOCYTOPENIC PURPURA
     Dosage: 50MG PER DAY
     Route: 048
     Dates: start: 20130308, end: 20130320
  2. PANTOPRAZOLE SODIUM SESQUIHYDRATE [Concomitant]
     Route: 048
  3. ENAPREN [Concomitant]
     Route: 065

REACTIONS (1)
  - Pneumonitis [Recovered/Resolved]
